FAERS Safety Report 7924870-5 (Version None)
Quarter: 2011Q4

REPORT INFORMATION
  Report Type: 
  Country: None (occurrence: None)
  Receive Date: 20111118
  Receipt Date: 20110329
  Transmission Date: 20120403
  Serious: No
  Sender: FDA-Public Use
  Company Number: US-AMGEN-USASP2011016866

PATIENT
  Sex: Female

DRUGS (1)
  1. ENBREL [Suspect]
     Indication: RHEUMATOID ARTHRITIS
     Dosage: 50 MG, QWK
     Dates: start: 20110222

REACTIONS (5)
  - INJECTION SITE ERYTHEMA [None]
  - RHEUMATOID NODULE [None]
  - MUSCULAR WEAKNESS [None]
  - INJECTION SITE REACTION [None]
  - INJECTION SITE PAIN [None]
